FAERS Safety Report 5310186-2 (Version None)
Quarter: 2007Q2

REPORT INFORMATION
  Report Type: 
  Country: None (occurrence: None)
  Receive Date: 20070427
  Receipt Date: 20070418
  Transmission Date: 20071010
  Serious: Yes (Life-Threatening, Disabling, Other)
  Sender: FDA-Public Use
  Company Number: US-PURDUE-USA_2007_0027102

PATIENT
  Age: 53 Year
  Sex: Male

DRUGS (1)
  1. OXYCONTIN [Suspect]
     Indication: GUN SHOT WOUND
     Dosage: UNK, UNK
     Dates: start: 20000101

REACTIONS (5)
  - AMNESIA [None]
  - DEPRESSION [None]
  - DRUG DEPENDENCE [None]
  - IMPAIRED WORK ABILITY [None]
  - SUICIDE ATTEMPT [None]
